FAERS Safety Report 10243357 (Version 1)
Quarter: 2014Q2

REPORT INFORMATION
  Report Type: Spontaneous
  Country: US (occurrence: None)
  Receive Date: 20140616
  Receipt Date: 20140616
  Transmission Date: 20141212
  Serious: Yes (Other)
  Sender: FDA-Public Use
  Company Number: None

PATIENT
  Sex: Female

DRUGS (1)
  1. KEPPRA 250MG [Suspect]
     Indication: EPILEPSY
     Dosage: 1.5 ?QAM?PO?2 ?QPM?PO
     Route: 048
     Dates: start: 2008

REACTIONS (4)
  - Therapeutic response changed [None]
  - Product substitution issue [None]
  - Convulsion [None]
  - Condition aggravated [None]
